FAERS Safety Report 7646981-4 (Version None)
Quarter: 2011Q3

REPORT INFORMATION
  Report Type: 
  Country: None (occurrence: None)
  Receive Date: 20110801
  Receipt Date: 20110719
  Transmission Date: 20111222
  Serious: Yes (Hospitalization, Other)
  Sender: FDA-Public Use
  Company Number: DE-ELI_LILLY_AND_COMPANY-DE201107004835

PATIENT
  Sex: Female

DRUGS (3)
  1. CALCIUM ACETATE [Concomitant]
  2. FORTEO [Suspect]
     Indication: OSTEOPOROSIS
     Dosage: UNK, QD
     Dates: start: 20101011
  3. ERGOCALCIFEROL [Concomitant]

REACTIONS (2)
  - JOINT DISLOCATION [None]
  - HIP SURGERY [None]
